FAERS Safety Report 17138714 (Version 1)
Quarter: 2019Q4

REPORT INFORMATION
  Report Type: Spontaneous
  Country: US (occurrence: US)
  Receive Date: 20191211
  Receipt Date: 20191211
  Transmission Date: 20200122
  Serious: No
  Sender: FDA-Public Use
  Company Number: US-UCBSA-2016019528

PATIENT
  Age: 68 Year
  Sex: Female

DRUGS (7)
  1. VIMPAT [Suspect]
     Active Substance: LACOSAMIDE
     Indication: FACIAL SPASM
     Dosage: 1 OR 2 TABLETS (50 MG); 2X/DAY (BID)
     Route: 048
     Dates: start: 2015, end: 201508
  2. VIMPAT [Suspect]
     Active Substance: LACOSAMIDE
     Indication: OFF LABEL USE
     Dosage: 100 MG, 2X/DAY (BID)
     Route: 048
     Dates: start: 201508, end: 2015
  3. VIMPAT [Suspect]
     Active Substance: LACOSAMIDE
     Dosage: 150 MG, 2X/DAY (BID)
     Route: 048
     Dates: start: 2015
  4. GABAPENTIN. [Concomitant]
     Active Substance: GABAPENTIN
     Dosage: TAPERED DOSE
  5. OXCARBAZEPINE. [Concomitant]
     Active Substance: OXCARBAZEPINE
     Indication: TRIGEMINAL NEURALGIA
     Dosage: 600 MG
  6. OXCARBAZEPINE. [Concomitant]
     Active Substance: OXCARBAZEPINE
     Dosage: TAPERED DOSE
  7. GABAPENTIN. [Concomitant]
     Active Substance: GABAPENTIN
     Indication: TRIGEMINAL NEURALGIA
     Dosage: 1200 MG IN DIVIDED DOSES

REACTIONS (1)
  - No adverse event [Unknown]
